FAERS Safety Report 4906245-6 (Version None)
Quarter: 2006Q1

REPORT INFORMATION
  Report Type: 
  Country: None (occurrence: None)
  Receive Date: 20060202
  Receipt Date: 20060120
  Transmission Date: 20060701
  Serious: Yes (Other)
  Sender: FDA-Public Use
  Company Number: 2006BH000466

PATIENT
  Age: 70 Year
  Sex: Male

DRUGS (1)
  1. IGIV GENERIC [Suspect]
     Indication: IMMUNODEFICIENCY COMMON VARIABLE
     Dosage: 600 MG/KG; EVERY 3 WK; IV
     Route: 042

REACTIONS (9)
  - BLOOD VISCOSITY INCREASED [None]
  - CARDIOVASCULAR DISORDER [None]
  - CEREBRAL INFARCTION [None]
  - CEREBROVASCULAR ACCIDENT [None]
  - COAGULOPATHY [None]
  - HEMIANOPIA HOMONYMOUS [None]
  - HYPEROSMOLAR STATE [None]
  - PHARMACEUTICAL PRODUCT COMPLAINT [None]
  - VASOSPASM [None]
